FAERS Safety Report 22300295 (Version 9)
Quarter: 2025Q3

REPORT INFORMATION
  Report Type: Spontaneous
  Country: US (occurrence: US)
  Receive Date: 20230509
  Receipt Date: 20250829
  Transmission Date: 20251021
  Serious: Yes (Other)
  Sender: PFIZER
  Company Number: US-PFIZER INC-PV202300080187

PATIENT
  Age: 63 Year
  Sex: Female

DRUGS (15)
  1. XELJANZ XR [Suspect]
     Active Substance: TOFACITINIB CITRATE
     Dosage: 11 MG, 1X/DAY
     Route: 048
  2. AMOXICILLIN [Concomitant]
     Active Substance: AMOXICILLIN
  3. ATORVASTATIN [Concomitant]
     Active Substance: ATORVASTATIN
  4. CALCIUM [Concomitant]
     Active Substance: CALCIUM
  5. COLACE [Concomitant]
     Active Substance: DOCUSATE SODIUM
  6. FISH OIL [Concomitant]
     Active Substance: FISH OIL
  7. FOLIC ACID [Concomitant]
     Active Substance: FOLIC ACID
  8. MAGNESIUM [Concomitant]
     Active Substance: MAGNESIUM
  9. METHOTREXATE [Concomitant]
     Active Substance: METHOTREXATE
  10. MUCINEX [Concomitant]
     Active Substance: GUAIFENESIN
  11. RISPERIDONE [Concomitant]
     Active Substance: RISPERIDONE
  12. VITAMIN C [Concomitant]
     Active Substance: ASCORBIC ACID
  13. CHOLECALCIFEROL [Concomitant]
     Active Substance: CHOLECALCIFEROL
  14. VITAMIN D NOS [Concomitant]
     Active Substance: CHOLECALCIFEROL\ERGOCALCIFEROL
  15. ZINC [Concomitant]
     Active Substance: ZINC

REACTIONS (4)
  - Dental operation [Unknown]
  - Knee arthroplasty [Unknown]
  - Blood cholesterol abnormal [Unknown]
  - Illness [Unknown]
